FAERS Safety Report 7031945-4 (Version None)
Quarter: 2010Q4

REPORT INFORMATION
  Report Type: 
  Country: None (occurrence: None)
  Receive Date: 20101007
  Receipt Date: 20101001
  Transmission Date: 20110411
  Serious: Yes (Hospitalization)
  Sender: FDA-Public Use
  Company Number: US-ELI_LILLY_AND_COMPANY-US201008008767

PATIENT
  Sex: Male

DRUGS (5)
  1. HUMALOG [Suspect]
     Indication: DIABETES MELLITUS
     Dosage: 7 U, EACH MORNING
  2. HUMALOG [Suspect]
     Dosage: 9 U, OTHER
  3. HUMALOG [Suspect]
     Dosage: 9 U, EACH EVENING
  4. HUMALOG [Suspect]
     Dosage: UNK, AS NEEDED
  5. LANTUS [Concomitant]
     Dosage: 22 U, EACH MORNING

REACTIONS (1)
  - TRANSIENT ISCHAEMIC ATTACK [None]
